FAERS Safety Report 5328354-2 (Version None)
Quarter: 2007Q2

REPORT INFORMATION
  Report Type: 
  Country: None (occurrence: None)
  Receive Date: 20070515
  Receipt Date: 20070515
  Transmission Date: 20071010
  Serious: Yes (Other)
  Sender: FDA-Public Use
  Company Number: None

PATIENT
  Age: 54 Year
  Sex: Female
  Weight: 56.6996 kg

DRUGS (1)
  1. LAMICTAL [Suspect]

REACTIONS (6)
  - ACCIDENT [None]
  - COORDINATION ABNORMAL [None]
  - FALL [None]
  - HEPATIC ENZYME INCREASED [None]
  - LOWER LIMB FRACTURE [None]
  - UPPER LIMB FRACTURE [None]
